FAERS Safety Report 4766200-6 (Version None)
Quarter: 2005Q3

REPORT INFORMATION
  Report Type: 
  Country: None (occurrence: None)
  Receive Date: 20050912
  Receipt Date: 20050804
  Transmission Date: 20060218
  Serious: Yes (Death, Hospitalization)
  Sender: FDA-Public Use
  Company Number: PHBS2005JP11317

PATIENT
  Age: 73 Year
  Sex: Male

DRUGS (2)
  1. METHYLPREDNISOLONE [Suspect]
     Indication: IDIOPATHIC THROMBOCYTOPENIC PURPURA
  2. NEORAL [Suspect]
     Indication: IDIOPATHIC THROMBOCYTOPENIC PURPURA
     Dosage: UNK, UNK
     Route: 065
     Dates: start: 20010401

REACTIONS (11)
  - ANAL ULCER [None]
  - BLISTER [None]
  - CONDITION AGGRAVATED [None]
  - CYTOMEGALOVIRUS VIRAEMIA [None]
  - DISEASE RECURRENCE [None]
  - DRUG INEFFECTIVE [None]
  - GASTROINTESTINAL ULCER [None]
  - GINGIVAL BLEEDING [None]
  - HERPES SIMPLEX [None]
  - IDIOPATHIC THROMBOCYTOPENIC PURPURA [None]
  - MULTI-ORGAN FAILURE [None]
